FAERS Safety Report 15244471 (Version 3)
Quarter: 2020Q3

REPORT INFORMATION
  Report Type: Report from Study
  Country: GB (occurrence: GB)
  Receive Date: 20180806
  Receipt Date: 20200911
  Transmission Date: 20201102
  Serious: Yes (Hospitalization, Other)
  Sender: FDA-Public Use
  Company Number: GB-JNJFOC-20180801087

PATIENT
  Age: 93 Year
  Sex: Male
  Weight: 77 kg

DRUGS (1)
  1. STELARA [Suspect]
     Active Substance: USTEKINUMAB
     Indication: PSORIASIS
     Route: 058
     Dates: start: 20130319

REACTIONS (5)
  - Cellulitis [Unknown]
  - Anaemia macrocytic [Unknown]
  - Infective exacerbation of chronic obstructive airways disease [Unknown]
  - Atrial flutter [Unknown]
  - Blood potassium decreased [Unknown]

NARRATIVE: CASE EVENT DATE: 20180212
